FAERS Safety Report 24418733 (Version 2)
Quarter: 2024Q4

REPORT INFORMATION
  Report Type: Spontaneous
  Country: US (occurrence: US)
  Receive Date: 20241009
  Receipt Date: 20241014
  Transmission Date: 20250115
  Serious: Yes (Hospitalization)
  Sender: IOVANCE BIOTHERAPEUTICS
  Company Number: US-IOVANCE BIOTHERAPEUTICS, INC-2024IOV000086

PATIENT

DRUGS (4)
  1. AMTAGVI [Suspect]
     Active Substance: LIFILEUCEL
     Dosage: UNK
     Route: 042
     Dates: start: 2024, end: 2024
  2. CYCLOPHOSPHAMIDE [Suspect]
     Active Substance: CYCLOPHOSPHAMIDE
     Indication: Lymphodepletion
     Dosage: UNK
     Route: 042
     Dates: start: 2024, end: 2024
  3. FLUDARABINE [Concomitant]
     Active Substance: FLUDARABINE PHOSPHATE
     Indication: Lymphodepletion
     Dosage: UNK
     Route: 042
     Dates: start: 2024, end: 2024
  4. ALDESLEUKIN [Suspect]
     Active Substance: ALDESLEUKIN
     Dosage: UNK
     Dates: start: 2024, end: 2024

REACTIONS (5)
  - Cytopenia [Unknown]
  - Hypoxia [Unknown]
  - Pneumonia [Unknown]
  - Septic shock [Unknown]
  - Mental status changes [Recovered/Resolved]

NARRATIVE: CASE EVENT DATE: 20240101
